FAERS Safety Report 20174194 (Version 1)
Quarter: 2021Q4

REPORT INFORMATION
  Report Type: Spontaneous
  Country: US (occurrence: US)
  Receive Date: 20211213
  Receipt Date: 20211213
  Transmission Date: 20220303
  Serious: No
  Sender: FDA-Public Use
  Company Number: US-AUROBINDO-AUR-APL-2021-002402

PATIENT
  Sex: Male

DRUGS (2)
  1. MIRTAZAPINE [Suspect]
     Active Substance: MIRTAZAPINE
     Indication: Decreased appetite
     Dosage: UNK
     Route: 065
  2. LENVIMA [Concomitant]
     Active Substance: LENVATINIB
     Indication: Hepatocellular carcinoma
     Dosage: 12 MILLIGRAM, DAILY
     Route: 048

REACTIONS (2)
  - Fatigue [Unknown]
  - Product use in unapproved indication [Unknown]
